FAERS Safety Report 8319509-3 (Version None)
Quarter: 2012Q2

REPORT INFORMATION
  Report Type: 
  Country: None (occurrence: None)
  Receive Date: 20120427
  Receipt Date: 20120420
  Transmission Date: 20120825
  Serious: Yes (Other)
  Sender: FDA-Public Use
  Company Number: US-JNJFOC-20110305820

PATIENT
  Sex: Male

DRUGS (8)
  1. LEVAQUIN [Suspect]
     Route: 048
     Dates: start: 20090602, end: 20090612
  2. HYZAAR [Concomitant]
     Indication: BLOOD PRESSURE
     Route: 065
  3. LEVAQUIN [Suspect]
     Indication: INFECTION
     Route: 048
     Dates: start: 20090407, end: 20090417
  4. LEVOTHYROXINE SODIUM [Concomitant]
     Indication: THYROID DISORDER
     Route: 065
  5. GABAPENTIN [Concomitant]
     Indication: NEURALGIA
     Route: 065
  6. VITAMIN [Concomitant]
     Indication: PRODUCT USED FOR UNKNOWN INDICATION
     Route: 065
  7. LEVAQUIN [Suspect]
     Route: 048
     Dates: start: 20090708, end: 20090728
  8. PRAVACHOL [Concomitant]
     Indication: PRODUCT USED FOR UNKNOWN INDICATION
     Route: 065

REACTIONS (5)
  - ROTATOR CUFF SYNDROME [None]
  - TENOSYNOVITIS [None]
  - CHONDROMATOSIS [None]
  - TENDON RUPTURE [None]
  - DEPRESSION [None]
